FAERS Safety Report 10027461 (Version 1)
Quarter: 2014Q1

REPORT INFORMATION
  Report Type: Spontaneous
  Country: US (occurrence: US)
  Receive Date: 20140321
  Receipt Date: 20140321
  Transmission Date: 20141002
  Serious: Yes (Other)
  Sender: FDA-Public Use
  Company Number: US-PFIZER INC-2014081824

PATIENT
  Age: 76 Year
  Sex: Female
  Weight: 43.08 kg

DRUGS (2)
  1. PRISTIQ [Suspect]
     Indication: DEPRESSION
     Dosage: 50 MG DAILY AT BEDTIME
     Dates: start: 20140301
  2. PRISTIQ [Suspect]
     Indication: ANXIETY

REACTIONS (11)
  - Hallucination [Unknown]
  - Pre-existing condition improved [Unknown]
  - Therapeutic response unexpected [Unknown]
  - Energy increased [Unknown]
  - Inappropriate affect [Unknown]
  - Nightmare [Not Recovered/Not Resolved]
  - Restlessness [Unknown]
  - Thinking abnormal [Unknown]
  - Abnormal dreams [Unknown]
  - Abnormal behaviour [Unknown]
  - Tobacco user [Unknown]
